FAERS Safety Report 24349087 (Version 1)
Quarter: 2024Q3

REPORT INFORMATION
  Report Type: Spontaneous
  Country: FR (occurrence: FR)
  Receive Date: 20240923
  Receipt Date: 20240923
  Transmission Date: 20241017
  Serious: Yes (Hospitalization, Other)
  Sender: CELLTRION
  Company Number: None

PATIENT

DRUGS (3)
  1. RITUXIMAB [Suspect]
     Active Substance: RITUXIMAB
     Indication: Interstitial lung disease
     Dosage: 1 DF
     Route: 042
     Dates: start: 20230328
  2. RITUXIMAB [Suspect]
     Active Substance: RITUXIMAB
     Dosage: 1 DF
     Route: 042
     Dates: start: 20230314
  3. OFEV [Concomitant]
     Active Substance: NINTEDANIB
     Indication: Interstitial lung disease
     Dosage: UNK
     Route: 048
     Dates: start: 20230328

REACTIONS (4)
  - Polyarthritis [Recovered/Resolved]
  - Inflammation [Recovered/Resolved]
  - Serum sickness [Recovered/Resolved]
  - Intentional product use issue [Unknown]

NARRATIVE: CASE EVENT DATE: 20230404
